FAERS Safety Report 22182619 (Version 1)
Quarter: 2023Q2

REPORT INFORMATION
  Report Type: Spontaneous
  Country: US (occurrence: US)
  Receive Date: 20230406
  Receipt Date: 20230406
  Transmission Date: 20230721
  Serious: No
  Sender: FDA-Public Use
  Company Number: US-ENZYVANT THERAPEUTICS, INC.-US2023ENZ00008

PATIENT

DRUGS (1)
  1. RETHYMIC [Suspect]
     Active Substance: ALLOGENIC THYMOCYTE-DEPLETED THYMUS TISSUE-AGDC
     Indication: DiGeorge^s syndrome
     Dosage: UNK, SINGLE
     Dates: start: 20230322

REACTIONS (1)
  - Rhinovirus infection [Unknown]
